FAERS Safety Report 24086535 (Version 1)
Quarter: 2024Q3

REPORT INFORMATION
  Report Type: Spontaneous
  Country: FR (occurrence: FR)
  Receive Date: 20240713
  Receipt Date: 20240713
  Transmission Date: 20241016
  Serious: Yes (Other)
  Sender: TEVA
  Company Number: None

PATIENT
  Age: 33 Year
  Sex: Female
  Weight: 51 kg

DRUGS (2)
  1. EPIRUBICIN [Suspect]
     Active Substance: EPIRUBICIN
     Indication: Breast cancer
     Route: 042
     Dates: start: 202404
  2. CYCLOPHOSPHAMIDE [Suspect]
     Active Substance: CYCLOPHOSPHAMIDE
     Indication: Breast cancer
     Route: 042
     Dates: start: 202404

REACTIONS (1)
  - Foetal growth restriction [Unknown]

NARRATIVE: CASE EVENT DATE: 20240619
